FAERS Safety Report 9997260 (Version 1)
Quarter: 2014Q1

REPORT INFORMATION
  Report Type: Spontaneous
  Country: US (occurrence: US)
  Receive Date: 20140311
  Receipt Date: 20140311
  Transmission Date: 20141002
  Serious: No
  Sender: FDA-Public Use
  Company Number: US-BAYER-2014-037075

PATIENT
  Age: 73 Year
  Sex: Female
  Weight: 96 kg

DRUGS (3)
  1. ALEVE CAPLET [Suspect]
     Indication: ARTHRALGIA
     Dosage: 1 DF, BID, DAILY
     Route: 048
     Dates: start: 201402
  2. VITAMIN B12 [Concomitant]
  3. GARLIC [Concomitant]

REACTIONS (1)
  - Incorrect drug administration duration [None]
